FAERS Safety Report 9553203 (Version 1)
Quarter: 2013Q3

REPORT INFORMATION
  Report Type: Spontaneous
  Country: US (occurrence: None)
  Receive Date: 20130924
  Receipt Date: 20130924
  Transmission Date: 20140515
  Serious: No
  Sender: FDA-Public Use
  Company Number: None

PATIENT
  Age: 47 Year
  Sex: Male

DRUGS (5)
  1. TECFIDERA [Suspect]
     Indication: MULTIPLE SCLEROSIS
     Dosage: 1 CAPSULE BID ORAL
     Route: 048
     Dates: start: 20130915, end: 20130921
  2. BACLOFEN [Concomitant]
  3. LUNESTA [Concomitant]
  4. OXYBUTYNIN CHLORIDE [Concomitant]
  5. MULTI-VITAMIN [Concomitant]

REACTIONS (2)
  - Anxiety [None]
  - Palpitations [None]
